FAERS Safety Report 20674336 (Version 1)
Quarter: 2022Q2

REPORT INFORMATION
  Report Type: Report from Study
  Country: BR (occurrence: BR)
  Receive Date: 20220405
  Receipt Date: 20220405
  Transmission Date: 20220721
  Serious: Yes (Other)
  Sender: FDA-Public Use
  Company Number: BR-NOVARTISPH-NVSC2022BR076698

PATIENT
  Sex: Female

DRUGS (2)
  1. TRILEPTAL [Suspect]
     Active Substance: OXCARBAZEPINE
     Indication: Product used for unknown indication
     Dosage: UNK, (USE CONTINUOUS)
     Route: 065
     Dates: start: 2007, end: 2014
  2. TRILEPTAL [Suspect]
     Active Substance: OXCARBAZEPINE
     Dosage: 600 MG (USE CONTINUOUS, 2 TABLET PER DAY)
     Route: 065
     Dates: start: 2014

REACTIONS (6)
  - Memory impairment [Unknown]
  - Malignant neoplasm progression [Unknown]
  - IIIrd nerve paralysis [Unknown]
  - Eyelid ptosis [Unknown]
  - Amnesia [Unknown]
  - Eye disorder [Recovered/Resolved with Sequelae]
